FAERS Safety Report 7356701-9 (Version None)
Quarter: 2011Q1

REPORT INFORMATION
  Report Type: 
  Country: None (occurrence: None)
  Receive Date: 20110316
  Receipt Date: 20110311
  Transmission Date: 20110831
  Serious: Yes (Death)
  Sender: FDA-Public Use
  Company Number: PHHY2011GB19785

PATIENT
  Age: 60 Year
  Sex: Male
  Weight: 60 kg

DRUGS (3)
  1. METHOTREXATE [Suspect]
  2. LEFLUNOMIDE [Suspect]
  3. HYDROXYCHLOROQUINE [Suspect]

REACTIONS (2)
  - ESCHERICHIA BACTERAEMIA [None]
  - NEUTROPENIC SEPSIS [None]
